FAERS Safety Report 7383991-9 (Version None)
Quarter: 2011Q1

REPORT INFORMATION
  Report Type: 
  Country: None (occurrence: None)
  Receive Date: 20110330
  Receipt Date: 20110326
  Transmission Date: 20110831
  Serious: No
  Sender: FDA-Public Use
  Company Number: US-TEVA-273547USA

PATIENT
  Sex: Female
  Weight: 59.02 kg

DRUGS (2)
  1. NUVARING [Concomitant]
     Indication: CONTRACEPTION
     Route: 067
  2. PLAN B ONE-STEP [Suspect]
     Indication: POST COITAL CONTRACEPTION
     Route: 048
     Dates: start: 20110320, end: 20110320

REACTIONS (2)
  - VOMITING [None]
  - NAUSEA [None]
